FAERS Safety Report 12597185 (Version 1)
Quarter: 2016Q3

REPORT INFORMATION
  Report Type: Spontaneous
  Country: US (occurrence: None)
  Receive Date: 20160726
  Receipt Date: 20160726
  Transmission Date: 20161109
  Serious: No
  Sender: FDA-Public Use
  Company Number: None

PATIENT
  Age: 51 Year
  Sex: Female

DRUGS (1)
  1. BOTOX [Suspect]
     Active Substance: ONABOTULINUMTOXINA
     Indication: MIGRAINE
     Dosage: 200 UNITS  EVERY 3 MONTHS
     Route: 030
     Dates: start: 20160426

REACTIONS (2)
  - Drug effect decreased [None]
  - Headache [None]

NARRATIVE: CASE EVENT DATE: 20160501
